FAERS Safety Report 24254868 (Version 1)
Quarter: 2024Q3

REPORT INFORMATION
  Report Type: Spontaneous
  Country: US (occurrence: None)
  Receive Date: 20240826
  Receipt Date: 20240826
  Transmission Date: 20241016
  Serious: Yes (Other)
  Sender: Public
  Company Number: None

PATIENT
  Age: 48 Year
  Sex: Female
  Weight: 110.7 kg

DRUGS (1)
  1. VICTOZA [Suspect]
     Active Substance: LIRAGLUTIDE
     Indication: Weight decreased
     Dosage: FREQUENCY : DAILY;?OTHER ROUTE : INJECTED INTO ABDOMEN;?
     Route: 050

REACTIONS (2)
  - Goitre [None]
  - Neck mass [None]

NARRATIVE: CASE EVENT DATE: 20240802
